FAERS Safety Report 6721548-0 (Version None)
Quarter: 2010Q2

REPORT INFORMATION
  Report Type: 
  Country: None (occurrence: None)
  Receive Date: 20100512
  Receipt Date: 20100504
  Transmission Date: 20101027
  Serious: Yes (Hospitalization)
  Sender: FDA-Public Use
  Company Number: CZ-NAPPMUNDI-DEU-2010-0006137

PATIENT
  Sex: Female

DRUGS (8)
  1. OXYCODONE HCL EXTENDED-RELEASE [Suspect]
     Indication: ARTHRALGIA
     Dosage: 20 MG, DAILY
     Route: 048
     Dates: start: 20100401
  2. OXYCODONE HCL EXTENDED-RELEASE [Suspect]
     Dosage: 10 MG, DAILY
     Route: 048
     Dates: start: 20100331, end: 20100331
  3. TRAMAL                             /00599201/ [Concomitant]
  4. LETROX [Concomitant]
  5. MONOMACK [Concomitant]
  6. VASOCARDIN [Concomitant]
  7. CARDILAN                           /01035601/ [Concomitant]
  8. ANOPYRIN [Concomitant]

REACTIONS (1)
  - JAUNDICE CHOLESTATIC [None]
